FAERS Safety Report 5299820-3 (Version None)
Quarter: 2007Q2

REPORT INFORMATION
  Report Type: 
  Country: None (occurrence: None)
  Receive Date: 20070417
  Receipt Date: 20070409
  Transmission Date: 20071010
  Serious: Yes (Hospitalization, Other)
  Sender: FDA-Public Use
  Company Number: US-PFIZER INC-2007028906

PATIENT
  Sex: Female

DRUGS (6)
  1. LYRICA [Suspect]
  2. NEURONTIN [Suspect]
  3. AMBIEN [Suspect]
  4. OXYCODONE HCL [Concomitant]
  5. CYMBALTA [Concomitant]
  6. MORPHINE [Concomitant]

REACTIONS (5)
  - ABNORMAL BEHAVIOUR [None]
  - CONFUSIONAL STATE [None]
  - ENCEPHALOPATHY [None]
  - MIDDLE INSOMNIA [None]
  - PSYCHOTIC DISORDER [None]
